FAERS Safety Report 10741616 (Version 14)
Quarter: 2015Q4

REPORT INFORMATION
  Report Type: Spontaneous
  Country: US (occurrence: US)
  Receive Date: 20150127
  Receipt Date: 20151001
  Transmission Date: 20160304
  Serious: Yes (Other)
  Sender: FDA-Public Use
  Company Number: US-PFIZER INC-2015031957

PATIENT
  Age: 56 Year
  Sex: Female
  Weight: 86 kg

DRUGS (10)
  1. XANAX [Concomitant]
     Active Substance: ALPRAZOLAM
     Indication: ANXIETY
     Dosage: UNK
  2. LYRICA [Suspect]
     Active Substance: PREGABALIN
     Dosage: 200 MG, (ONCE IN THE MORNING AND ONCE AT NIGHT)
     Route: 048
     Dates: start: 20140827
  3. SEROQUEL [Concomitant]
     Active Substance: QUETIAPINE FUMARATE
     Dosage: 100 MG, 2X/DAY
     Dates: start: 20111107
  4. LYRICA [Suspect]
     Active Substance: PREGABALIN
     Indication: NERVE INJURY
     Dosage: UNK
     Route: 048
  5. LYRICA [Suspect]
     Active Substance: PREGABALIN
     Dosage: 100 MG, UNK
     Route: 048
  6. LYRICA [Suspect]
     Active Substance: PREGABALIN
     Dosage: 300 MG, 2X/DAY
     Route: 048
     Dates: start: 20140220
  7. AMITRIPTYLINE [Concomitant]
     Active Substance: AMITRIPTYLINE
     Dosage: 100 MG, DAILY (100 MG AT BEDTIME)
     Dates: start: 20111107
  8. LYRICA [Suspect]
     Active Substance: PREGABALIN
     Indication: NEUROPATHY PERIPHERAL
     Dosage: 100 MG, 2X/DAY (MORNING AND NIGHT)
     Route: 048
     Dates: start: 2011
  9. LYRICA [Suspect]
     Active Substance: PREGABALIN
     Dosage: 75 MG, UNK
     Route: 048
  10. BACLOFEN. [Concomitant]
     Active Substance: BACLOFEN
     Dosage: 10 MG, 3X/DAY
     Dates: start: 20150316

REACTIONS (24)
  - Nervous system disorder [Unknown]
  - Back pain [Unknown]
  - Drug ineffective [Unknown]
  - Hypoaesthesia [Unknown]
  - Condition aggravated [Unknown]
  - Agitation [Not Recovered/Not Resolved]
  - Burning sensation [Unknown]
  - Contusion [Unknown]
  - Activities of daily living impaired [Unknown]
  - Formication [Unknown]
  - Pruritus [Unknown]
  - Emotional disorder [Unknown]
  - Gallbladder disorder [Recovering/Resolving]
  - Pruritus [Not Recovered/Not Resolved]
  - Malaise [Not Recovered/Not Resolved]
  - Neuralgia [Not Recovered/Not Resolved]
  - Pain [Unknown]
  - Gait disturbance [Unknown]
  - Insomnia [Not Recovered/Not Resolved]
  - Condition aggravated [Not Recovered/Not Resolved]
  - Pain in extremity [Unknown]
  - Road traffic accident [Unknown]
  - Paraesthesia [Unknown]
  - Increased appetite [Unknown]

NARRATIVE: CASE EVENT DATE: 2011
